FAERS Safety Report 6683870-6 (Version None)
Quarter: 2010Q2

REPORT INFORMATION
  Report Type: 
  Country: None (occurrence: None)
  Receive Date: 20100416
  Receipt Date: 20100406
  Transmission Date: 20101027
  Serious: Yes (Death, Hospitalization)
  Sender: FDA-Public Use
  Company Number: JP-JNJFOC-20091204514

PATIENT
  Sex: Female
  Weight: 53 kg

DRUGS (12)
  1. DOXORUBICIN HCL [Suspect]
     Indication: OVARIAN CANCER RECURRENT
     Route: 042
  2. VOLTAREN [Concomitant]
     Route: 054
  3. DAI-KENCHU-TO [Concomitant]
     Route: 048
  4. MAGNESIUM OXIDE [Concomitant]
     Route: 048
  5. NAUZELIN [Concomitant]
     Route: 048
  6. TELEMINSOFT [Concomitant]
     Route: 054
  7. LENDORMIN D [Concomitant]
     Route: 048
  8. KETOPROFEN [Concomitant]
     Route: 062
  9. PANTHENOL [Concomitant]
     Route: 042
  10. FAMOTIDINE [Concomitant]
     Route: 042
  11. ROPION [Concomitant]
     Route: 042
  12. PRIMPERAN [Concomitant]
     Route: 042

REACTIONS (3)
  - INTESTINAL OBSTRUCTION [None]
  - MALIGNANT NEOPLASM PROGRESSION [None]
  - OVARIAN CANCER [None]
